FAERS Safety Report 4594485-8 (Version None)
Quarter: 2005Q1

REPORT INFORMATION
  Report Type: 
  Country: None (occurrence: None)
  Receive Date: 20050223
  Receipt Date: 20050210
  Transmission Date: 20050727
  Serious: Yes (Hospitalization)
  Sender: FDA-Public Use
  Company Number: MK200502-0130-1

PATIENT
  Age: 49 Year
  Sex: Female

DRUGS (10)
  1. FLUOXETINE [Suspect]
     Dosage: 10 MG, QD
     Route: 048
  2. HYDROCHLOROTHIAZIDE [Concomitant]
  3. GABAPENTIN [Concomitant]
  4. PROPRANOLOL [Concomitant]
  5. CARISOPRODOL [Concomitant]
  6. MIRTAZAPINE [Concomitant]
  7. LORATADINE/PSEUDOEPHEDRINE [Concomitant]
  8. FERROUS SULFATE TAB [Concomitant]
  9. IMPRAMINE HCL [Suspect]
     Dosage: 50MG DAILY
  10. LEVOFLOXACIN [Suspect]
     Dosage: 500MG DAILY

REACTIONS (7)
  - BLOOD CREATININE INCREASED [None]
  - BLOOD POTASSIUM DECREASED [None]
  - CHEST DISCOMFORT [None]
  - DYSPNOEA [None]
  - ELECTROCARDIOGRAM QT CORRECTED INTERVAL PROLONGED [None]
  - ESCHERICHIA INFECTION [None]
  - PYELONEPHRITIS [None]
